FAERS Safety Report 6663675-2 (Version None)
Quarter: 2010Q2

REPORT INFORMATION
  Report Type: 
  Country: None (occurrence: None)
  Receive Date: 20100401
  Receipt Date: 20100324
  Transmission Date: 20101027
  Serious: Yes (Other)
  Sender: FDA-Public Use
  Company Number: BR-ROCHE-693613

PATIENT
  Sex: Female
  Weight: 70 kg

DRUGS (5)
  1. XENICAL [Suspect]
     Indication: WEIGHT CONTROL
     Route: 065
     Dates: start: 20091101
  2. XENICAL [Suspect]
     Dosage: DOSE REPORTED AS 120 MG OR 240 MG
     Route: 065
     Dates: end: 20100101
  3. XENICAL [Suspect]
     Dosage: LOT NO: M1779M1 EXP. DATE: MAY 2011
     Route: 065
     Dates: start: 20100322
  4. METFORMIN (GLUCOPHAGE) [Concomitant]
     Dates: end: 20100201
  5. GALVUS [Concomitant]
     Dosage: DRUG REPORTED AS GALVUS MET
     Dates: start: 20100201

REACTIONS (4)
  - FLATULENCE [None]
  - LYMPHOMA [None]
  - SECRETION DISCHARGE [None]
  - STEATORRHOEA [None]
